FAERS Safety Report 14901110 (Version 1)
Quarter: 2018Q2

REPORT INFORMATION
  Report Type: Spontaneous
  Country: US (occurrence: US)
  Receive Date: 20180428
  Receipt Date: 20180428
  Transmission Date: 20180711
  Serious: Yes (Disabling)
  Sender: FDA-Public Use
  Company Number: None

PATIENT
  Age: 64 Year
  Sex: Male
  Weight: 92.25 kg

DRUGS (2)
  1. PIOGLITAZONE HCL [Suspect]
     Active Substance: PIOGLITAZONE
     Indication: TYPE 2 DIABETES MELLITUS
     Dosage: ?          QUANTITY:1 TABLET(S);?
     Route: 048
     Dates: start: 20180307, end: 20180407
  2. GLIMEPIRIDE 4MG [Suspect]
     Active Substance: GLIMEPIRIDE

REACTIONS (10)
  - Dyspnoea [None]
  - Hyperhidrosis [None]
  - Weight increased [None]
  - Oedema [None]
  - Pain in extremity [None]
  - Insomnia [None]
  - Myalgia [None]
  - Urticaria [None]
  - Joint range of motion decreased [None]
  - Abdominal pain [None]

NARRATIVE: CASE EVENT DATE: 20180307
